FAERS Safety Report 13049588 (Version 6)
Quarter: 2017Q2

REPORT INFORMATION
  Report Type: Report from Study
  Country: IT (occurrence: IT)
  Receive Date: 20161221
  Receipt Date: 20170615
  Transmission Date: 20170830
  Serious: Yes (Death, Hospitalization, Other)
  Sender: FDA-Public Use
  Company Number: IT-ROCHE-1867881

PATIENT
  Age: 70 Year
  Sex: Female
  Weight: 58 kg

DRUGS (9)
  1. COBIMETINIB [Suspect]
     Active Substance: COBIMETINIB
     Indication: METASTATIC MALIGNANT MELANOMA
     Dosage: 20 MG -63 (3X21) TABLETS
     Route: 048
     Dates: start: 20160524, end: 20170404
  2. ZELBORAF [Suspect]
     Active Substance: VEMURAFENIB
     Indication: METASTATIC MALIGNANT MELANOMA
     Route: 048
     Dates: start: 20160412, end: 20170404
  3. EUTIROX [Concomitant]
     Active Substance: LEVOTHYROXINE SODIUM
     Dosage: 50 TABLETS, PER-7 YRS
     Route: 048
     Dates: start: 20100101, end: 20161213
  4. CARDICOR [Concomitant]
     Active Substance: BISOPROLOL
     Dosage: 28 X 2.5 MG TABLETS IN PVC/AL BLISTER PACK PERIOD-12 YEARS
     Route: 048
     Dates: start: 20050101, end: 20161213
  5. FLUXUM [Concomitant]
     Active Substance: PARNAPARIN SODIUM
     Dosage: 4.250 I.U. AXA SOLUTION FOR INJECTION,PER-3 MONTHS
     Route: 058
     Dates: start: 2017
  6. CARDIOASPIRINA [Concomitant]
     Active Substance: ASPIRIN
     Dosage: ^100 MG GASTRORESISTANT TABLETS^ 30 TABLETS PER-12 YRS
     Route: 048
     Dates: start: 20050101, end: 20161213
  7. PANTOPRAZOLE [Concomitant]
     Active Substance: PANTOPRAZOLE
     Dosage: PERIOD - 3 MONTHS
     Route: 048
     Dates: start: 2017
  8. SOLDESAM [Concomitant]
     Active Substance: DEXAMETHASONE
     Dosage: 4 MG/ML SOLUTION FOR INJECTION, PER-1YR
     Route: 065
     Dates: start: 20160101
  9. MESALAZIN [Concomitant]
     Active Substance: MESALAMINE
     Dosage: PERIOD - 3 MONTHS
     Route: 048
     Dates: start: 2017

REACTIONS (3)
  - Brain injury [Fatal]
  - Anaemia [Not Recovered/Not Resolved]
  - Diarrhoea [Recovered/Resolved]

NARRATIVE: CASE EVENT DATE: 20161201
